FAERS Safety Report 23224403 (Version 4)
Quarter: 2024Q1

REPORT INFORMATION
  Report Type: Spontaneous
  Country: CN (occurrence: CN)
  Receive Date: 20231124
  Receipt Date: 20240321
  Transmission Date: 20240410
  Serious: Yes (Hospitalization, Other)
  Sender: FDA-Public Use
  Company Number: CN-002147023-NVSC2023CN223662

PATIENT
  Age: 41 Year
  Sex: Male
  Weight: 83 kg

DRUGS (3)
  1. COSENTYX [Suspect]
     Active Substance: SECUKINUMAB
     Indication: Ankylosing spondylitis
     Dosage: 300 MG, QW (INTENSIVE INJECTION) (TWO INJECTIONS ONCE A WEEK) ROUTE OF ADMIN (FREE TEXT): INJECTION
     Route: 065
     Dates: start: 20231007
  2. COSENTYX [Suspect]
     Active Substance: SECUKINUMAB
     Dosage: 2 DF, QMO  (2 INJECTIONS PER MONTH AFTER USING FOR CONTINUOUS 5 WEEKS)
     Route: 058
  3. DEXAMETHASONE\TOBRAMYCIN [Suspect]
     Active Substance: DEXAMETHASONE\TOBRAMYCIN
     Indication: Product used for unknown indication
     Dosage: 4 DF, QD
     Route: 065

REACTIONS (26)
  - Ankylosing spondylitis [Unknown]
  - Iritis [Unknown]
  - Furuncle [Recovering/Resolving]
  - Infection [Unknown]
  - Pustule [Unknown]
  - Pain [Recovering/Resolving]
  - Discomfort [Recovering/Resolving]
  - Inflammation [Recovering/Resolving]
  - Swelling face [Recovering/Resolving]
  - Eye oedema [Recovering/Resolving]
  - Purulence [Unknown]
  - Condition aggravated [Recovering/Resolving]
  - Visual acuity reduced [Unknown]
  - Wound complication [Unknown]
  - Skin hypertrophy [Unknown]
  - Malaise [Unknown]
  - White blood cell count increased [Recovered/Resolved]
  - Lymphocyte count decreased [Recovered/Resolved]
  - Eosinophil percentage decreased [Recovered/Resolved]
  - Monocyte count increased [Recovered/Resolved]
  - Neutrophil count increased [Recovered/Resolved]
  - C-reactive protein increased [Recovered/Resolved]
  - Angular cheilitis [Unknown]
  - Laryngopharyngitis [Unknown]
  - Blood immunoglobulin E increased [Unknown]
  - Dermatitis [Unknown]

NARRATIVE: CASE EVENT DATE: 20231001
